FAERS Safety Report 8074718-6 (Version None)
Quarter: 2012Q1

REPORT INFORMATION
  Report Type: 
  Country: None (occurrence: None)
  Receive Date: 20120126
  Receipt Date: 20111209
  Transmission Date: 20120608
  Serious: Yes (Other)
  Sender: FDA-Public Use
  Company Number: US-ROCHE-786391

PATIENT
  Sex: Male
  Weight: 61.2 kg

DRUGS (3)
  1. ACCUTANE [Suspect]
     Indication: ACNE
     Route: 065
     Dates: start: 19941101, end: 19941201
  2. ACCUTANE [Suspect]
     Route: 065
     Dates: start: 19960601, end: 19960801
  3. ACCUTANE [Suspect]
     Route: 065

REACTIONS (14)
  - COLONIC POLYP [None]
  - SMALL INTESTINAL OBSTRUCTION [None]
  - DEPRESSION [None]
  - IRRITABLE BOWEL SYNDROME [None]
  - METASTASES TO LYMPH NODES [None]
  - CROHN'S DISEASE [None]
  - FISTULA [None]
  - LARGE INTESTINAL STRICTURE [None]
  - ANXIETY [None]
  - NEUROPATHY PERIPHERAL [None]
  - COLON CANCER [None]
  - COLITIS ULCERATIVE [None]
  - LARGE INTESTINAL OBSTRUCTION [None]
  - METASTASES TO LIVER [None]
